FAERS Safety Report 22086314 (Version 4)
Quarter: 2023Q4

REPORT INFORMATION
  Report Type: Spontaneous
  Country: US (occurrence: US)
  Receive Date: 20230310
  Receipt Date: 20231025
  Transmission Date: 20240110
  Serious: No
  Sender: FDA-Public Use
  Company Number: US-PFIZER INC-PV202300046593

PATIENT
  Age: 26 Year
  Sex: Male

DRUGS (1)
  1. CIBINQO [Suspect]
     Active Substance: ABROCITINIB
     Dosage: 200 MG, DAILY (TAKE 2 TABLETS BY MOUTH EVERY DAY)
     Route: 048

REACTIONS (3)
  - Lip swelling [Unknown]
  - Food allergy [Unknown]
  - Nasal congestion [Unknown]
